FAERS Safety Report 13735726 (Version 1)
Quarter: 2017Q3

REPORT INFORMATION
  Report Type: Spontaneous
  Country: US (occurrence: US)
  Receive Date: 20170708
  Receipt Date: 20170708
  Transmission Date: 20171127
  Serious: Yes (Hospitalization, Disabling)
  Sender: FDA-Public Use
  Company Number: None

PATIENT
  Age: 59 Year
  Sex: Female
  Weight: 60.75 kg

DRUGS (10)
  1. HYDROCHLOROTHIAZIDE AND LISINOPRIL [Concomitant]
     Active Substance: HYDROCHLOROTHIAZIDE\LISINOPRIL
  2. FISH OIL [Concomitant]
     Active Substance: FISH OIL
  3. VITAMIN C [Concomitant]
     Active Substance: ASCORBIC ACID
  4. CALCIUM [Concomitant]
     Active Substance: CALCIUM
  5. AMLODIPINE [Concomitant]
     Active Substance: AMLODIPINE BESYLATE
  6. VITAMIN D [Concomitant]
     Active Substance: CHOLECALCIFEROL
  7. PROLIA [Suspect]
     Active Substance: DENOSUMAB
     Indication: OSTEOPOROSIS
     Dosage: ?          OTHER STRENGTH:MG/MG;QUANTITY:1 INJECTION(S);OTHER FREQUENCY:EVERY SIX MONTHS;?
     Route: 058
     Dates: start: 20121220, end: 20161010
  8. ATORVASTATIN [Concomitant]
     Active Substance: ATORVASTATIN
  9. ONE-A-DAY MULTIPLE VITAMIN [Concomitant]
  10. IRON [Concomitant]
     Active Substance: IRON

REACTIONS (2)
  - Stress fracture [None]
  - Femur fracture [None]

NARRATIVE: CASE EVENT DATE: 20170407
